FAERS Safety Report 8362062-9 (Version None)
Quarter: 2012Q2

REPORT INFORMATION
  Report Type: 
  Country: None (occurrence: None)
  Receive Date: 20120515
  Receipt Date: 20120511
  Transmission Date: 20120825
  Serious: Yes (Hospitalization)
  Sender: FDA-Public Use
  Company Number: GB-ROCHE-1068790

PATIENT
  Sex: Male
  Weight: 76 kg

DRUGS (2)
  1. MABTHERA [Suspect]
     Indication: RHEUMATOID ARTHRITIS
     Dosage: LAST DOSE PRIOR TO SAE: 18/JAN/2012
     Dates: start: 20101111
  2. METHOTREXATE [Concomitant]

REACTIONS (1)
  - AORTIC ANEURYSM [None]
